FAERS Safety Report 24837514 (Version 1)
Quarter: 2025Q1

REPORT INFORMATION
  Report Type: Spontaneous
  Country: US (occurrence: None)
  Receive Date: 20250112
  Receipt Date: 20250112
  Transmission Date: 20250408
  Serious: Yes (Life-Threatening, Hospitalization, Disabling, Other)
  Sender: FDA-CTU
  Company Number: None

PATIENT
  Age: 30 Year
  Sex: Male
  Weight: 69.75 kg

DRUGS (7)
  1. FINASTERIDE [Suspect]
     Active Substance: FINASTERIDE
     Indication: Androgenetic alopecia
     Dosage: 1 TABLET DAILY ORAL
     Route: 048
     Dates: start: 20211201, end: 20220908
  2. FINASTERIDE [Suspect]
     Active Substance: FINASTERIDE
     Indication: Androgenetic alopecia
     Dosage: 1 TABLET DAILY ORAL ?
     Route: 048
     Dates: start: 20220913, end: 20230211
  3. Mens daily multivitamin [Concomitant]
  4. Methylcobalamin, [Concomitant]
  5. VITAMIN D3 [Concomitant]
     Active Substance: CHOLECALCIFEROL
  6. Zinc picolonate [Concomitant]
  7. MAGNESIUM [Concomitant]
     Active Substance: MAGNESIUM

REACTIONS (39)
  - Organic erectile dysfunction [None]
  - Erectile dysfunction [None]
  - Sensory loss [None]
  - Penis disorder [None]
  - Testicular disorder [None]
  - Perineal disorder [None]
  - Prostatic disorder [None]
  - Sensory disturbance [None]
  - Anorgasmia [None]
  - Libido decreased [None]
  - Brain fog [None]
  - Insomnia [None]
  - Anxiety [None]
  - Panic attack [None]
  - Anhedonia [None]
  - Disturbance in attention [None]
  - Memory impairment [None]
  - Muscle atrophy [None]
  - Testicular atrophy [None]
  - Ejaculation failure [None]
  - Dry skin [None]
  - Skin atrophy [None]
  - Alopecia [None]
  - Bone demineralisation [None]
  - Inflammation [None]
  - Eosinophilia [None]
  - Oesophagitis [None]
  - Blood oestrogen increased [None]
  - Blood testosterone decreased [None]
  - Muscle atrophy [None]
  - Asthenia [None]
  - Blood luteinising hormone abnormal [None]
  - Blood follicle stimulating hormone abnormal [None]
  - Hypogonadism male [None]
  - Depression [None]
  - Food intolerance [None]
  - Drug intolerance [None]
  - Malabsorption [None]
  - Vitamin B12 deficiency [None]

NARRATIVE: CASE EVENT DATE: 20230211
